FAERS Safety Report 18157950 (Version 1)
Quarter: 2020Q3

REPORT INFORMATION
  Report Type: Spontaneous
  Country: CO (occurrence: CO)
  Receive Date: 20200817
  Receipt Date: 20200817
  Transmission Date: 20201103
  Serious: Yes (Other)
  Sender: FDA-Public Use
  Company Number: CO-PFIZER INC-2019523940

PATIENT
  Age: 62 Year
  Sex: Female
  Weight: 62 kg

DRUGS (2)
  1. SUTENT [Suspect]
     Active Substance: SUNITINIB MALATE
     Indication: CLEAR CELL RENAL CELL CARCINOMA
     Dosage: 50 MG, DAILY(SUNITINIB SCHEME 2:1 X 9)
     Route: 048
     Dates: start: 201812, end: 201907
  2. SUTENT [Suspect]
     Active Substance: SUNITINIB MALATE
     Dosage: 50 MG, DAILY(SUNITINIB SCHEME 2:1 X 9)
     Route: 048

REACTIONS (10)
  - Gastrointestinal toxicity [Unknown]
  - Hyperthyroidism [Not Recovered/Not Resolved]
  - Skin exfoliation [Recovered/Resolved]
  - Hypertension [Not Recovered/Not Resolved]
  - Decreased immune responsiveness [Not Recovered/Not Resolved]
  - Mutism [Not Recovered/Not Resolved]
  - Vomiting [Recovered/Resolved]
  - Illness [Not Recovered/Not Resolved]
  - Diarrhoea [Recovered/Resolved]
  - Serositis [Unknown]

NARRATIVE: CASE EVENT DATE: 201907
